FAERS Safety Report 13615624 (Version 1)
Quarter: 2017Q2

REPORT INFORMATION
  Report Type: Spontaneous
  Country: US (occurrence: US)
  Receive Date: 20170606
  Receipt Date: 20170606
  Transmission Date: 20170830
  Serious: No
  Sender: FDA-Public Use
  Company Number: US-JNJFOC-20170504279

PATIENT
  Sex: Male
  Weight: 113.4 kg

DRUGS (1)
  1. NIZORAL [Suspect]
     Active Substance: KETOCONAZOLE
     Indication: DANDRUFF
     Dosage: VERY RARE OCCASIONS
     Route: 061

REACTIONS (2)
  - Expired product administered [Unknown]
  - Product container issue [Unknown]
